FAERS Safety Report 5583450-X (Version None)
Quarter: 2007Q4

REPORT INFORMATION
  Report Type: 
  Country: None (occurrence: None)
  Receive Date: 20071130
  Receipt Date: 20061026
  Transmission Date: 20080405
  Serious: Yes (Other)
  Sender: FDA-Public Use
  Company Number: WAES 0610USA14402

PATIENT
  Age: 71 Year
  Sex: Female
  Weight: 46.2669 kg

DRUGS (2)
  1. FOSAMAX [Suspect]
     Indication: OSTEOPOROSIS
     Dosage: 10 MG/DAILY/PO
     Route: 048
     Dates: start: 19990621
  2. FOSAMAX [Suspect]
     Indication: OSTEOPOROSIS
     Dosage: 70 MG/WKY/PO
     Route: 048
     Dates: start: 20010101, end: 20060101

REACTIONS (3)
  - OSTEOMYELITIS ACUTE [None]
  - OSTEOMYELITIS CHRONIC [None]
  - OSTEONECROSIS [None]
